FAERS Safety Report 8563884-1 (Version None)
Quarter: 2012Q3

REPORT INFORMATION
  Report Type: 
  Country: None (occurrence: None)
  Receive Date: 20120718
  Receipt Date: 20120713
  Transmission Date: 20120928
  Serious: Yes (Other)
  Sender: FDA-Public Use
  Company Number: 2012032852

PATIENT
  Age: 55 Year
  Sex: Female

DRUGS (1)
  1. HIZENTRA [Suspect]
     Dosage: 9 G 1X/WEEK, START DATE 2010 SUBCUTANEOUS
     Route: 058

REACTIONS (1)
  - NEPHROLITHIASIS [None]
